FAERS Safety Report 7117840-0 (Version None)
Quarter: 2010Q4

REPORT INFORMATION
  Report Type: 
  Country: None (occurrence: None)
  Receive Date: 20101118
  Receipt Date: 20101118
  Transmission Date: 20110411
  Serious: Yes (Disabling, Other)
  Sender: FDA-Public Use
  Company Number: None

PATIENT
  Age: 79 Year
  Sex: Male
  Weight: 68.0396 kg

DRUGS (3)
  1. LIPITOR [Suspect]
     Indication: HYPERCHOLESTEROLAEMIA
     Dosage: 10MG QD PO
     Route: 048
  2. PRAVASTATIN [Suspect]
     Dosage: 20 MG QD PO
     Route: 048
  3. CRESTOR [Suspect]
     Dosage: 20MG QOD PO
     Route: 048

REACTIONS (4)
  - EXFOLIATIVE RASH [None]
  - MUSCLE SPASMS [None]
  - RASH GENERALISED [None]
  - RASH MACULO-PAPULAR [None]
